FAERS Safety Report 8114893-8 (Version None)
Quarter: 2012Q1

REPORT INFORMATION
  Report Type: 
  Country: None (occurrence: None)
  Receive Date: 20120206
  Receipt Date: 20120125
  Transmission Date: 20120608
  Serious: Yes (Other)
  Sender: FDA-Public Use
  Company Number: CA-JNJFOC-20120200873

PATIENT
  Sex: Male
  Weight: 61.8 kg

DRUGS (7)
  1. PREVACID [Concomitant]
     Route: 065
  2. ZOPICLONE [Concomitant]
     Route: 065
  3. ATIVAN [Concomitant]
     Route: 065
  4. QUETIAPINE [Concomitant]
     Route: 065
  5. IMURAN [Concomitant]
     Route: 065
  6. PRISTIQ [Concomitant]
     Route: 065
  7. REMICADE [Suspect]
     Indication: CROHN'S DISEASE
     Route: 042
     Dates: start: 20100415

REACTIONS (1)
  - LACERATION [None]
